FAERS Safety Report 6366508-7 (Version None)
Quarter: 2009Q3

REPORT INFORMATION
  Report Type: 
  Country: None (occurrence: None)
  Receive Date: 20090921
  Receipt Date: 20090910
  Transmission Date: 20100115
  Serious: Yes (Hospitalization, Disabling)
  Sender: FDA-Public Use
  Company Number: CA-BAYER-200925161NA

PATIENT
  Age: 43 Year
  Sex: Female
  Weight: 66 kg

DRUGS (3)
  1. CIPRO XR [Suspect]
     Indication: URINARY TRACT INFECTION
     Route: 048
     Dates: start: 20071027, end: 20071029
  2. CARBAMAZEPINE [Concomitant]
     Dosage: TOTAL DAILY DOSE: 800 MG
  3. WELLBUTRIN [Concomitant]
     Dosage: TOTAL DAILY DOSE: 300 MG

REACTIONS (1)
  - TENDON RUPTURE [None]
